FAERS Safety Report 16852184 (Version 6)
Quarter: 2020Q1

REPORT INFORMATION
  Report Type: Report from Study
  Country: US (occurrence: US)
  Receive Date: 20190925
  Receipt Date: 20200218
  Transmission Date: 20200409
  Serious: Yes (Death, Life-Threatening, Hospitalization, Disabling, Other)
  Sender: FDA-Public Use
  Company Number: US-GILEAD-2019-0430316

PATIENT
  Age: 53 Year
  Sex: Female
  Weight: 52.5 kg

DRUGS (9)
  1. ALPRAZOLAM. [Concomitant]
     Active Substance: ALPRAZOLAM
  2. LEVOTHYROXINE. [Concomitant]
     Active Substance: LEVOTHYROXINE
  3. PRAVASTATIN. [Concomitant]
     Active Substance: PRAVASTATIN
  4. AMBRISENTAN [Suspect]
     Active Substance: AMBRISENTAN
     Indication: PULMONARY HYPERTENSION
     Dosage: 10 MG, QD
     Route: 048
  5. METOPROLOL. [Concomitant]
     Active Substance: METOPROLOL
  6. REVATIO [Concomitant]
     Active Substance: SILDENAFIL CITRATE
  7. JANUVIA [Concomitant]
     Active Substance: SITAGLIPTIN PHOSPHATE
  8. AMBRISENTAN [Suspect]
     Active Substance: AMBRISENTAN
     Dosage: 5 UNK
     Route: 048
  9. FUROSEMIDE. [Concomitant]
     Active Substance: FUROSEMIDE

REACTIONS (9)
  - Intestinal perforation [Recovered/Resolved]
  - Respiratory failure [Fatal]
  - Colostomy [Recovered/Resolved]
  - Intestinal obstruction [Unknown]
  - Hypoxia [Recovered/Resolved]
  - Cardiac failure congestive [Fatal]
  - Pulmonary hypertension [Fatal]
  - Product dose omission [Unknown]
  - Lung disorder [Fatal]

NARRATIVE: CASE EVENT DATE: 20190908
